FAERS Safety Report 8315247-1 (Version None)
Quarter: 2012Q2

REPORT INFORMATION
  Report Type: 
  Country: None (occurrence: None)
  Receive Date: 20120426
  Receipt Date: 20120420
  Transmission Date: 20120825
  Serious: Yes (Other)
  Sender: FDA-Public Use
  Company Number: PHHY2012AR010386

PATIENT
  Sex: Female

DRUGS (5)
  1. DIOVAN HCT [Suspect]
     Dosage: 80/12.5 MG, UNK
     Dates: start: 20120208
  2. DIOVAN [Suspect]
     Indication: HYPERTENSION
     Dosage: 80 MG, DAILY
     Dates: start: 20120101, end: 20120124
  3. DIOVAN HCT [Suspect]
     Indication: HYPERTENSION
     Dosage: 80/12.5 MG, UNK
     Dates: start: 20120101, end: 20120124
  4. ASPIRIN [Concomitant]
     Dosage: UNK UKN, UNK
  5. DIOVAN [Suspect]
     Dosage: 80 MG, DAILY
     Dates: start: 20120208

REACTIONS (3)
  - ANAEMIA [None]
  - BLOOD PRESSURE DECREASED [None]
  - ULCER HAEMORRHAGE [None]
